FAERS Safety Report 14692535 (Version 1)
Quarter: 2018Q1

REPORT INFORMATION
  Report Type: Spontaneous
  Country: US (occurrence: US)
  Receive Date: 20180329
  Receipt Date: 20180329
  Transmission Date: 20180509
  Serious: No
  Sender: FDA-Public Use
  Company Number: US-BEH-2018089059

PATIENT
  Age: 46 Year
  Sex: Female

DRUGS (3)
  1. BERINERT [Suspect]
     Active Substance: HUMAN C1-ESTERASE INHIBITOR
     Indication: HEREDITARY ANGIOEDEMA
     Dosage: 1500 IU, UNK
     Route: 042
     Dates: start: 20161118
  2. FIRAZYR [Concomitant]
     Active Substance: ICATIBANT ACETATE
     Indication: HEREDITARY ANGIOEDEMA
     Dosage: 1 DF, TOT
     Route: 065
     Dates: start: 20180312
  3. FIRAZYR [Concomitant]
     Active Substance: ICATIBANT ACETATE
     Dosage: 1 UNK, UNK
     Route: 065
     Dates: start: 20180315

REACTIONS (2)
  - Sinusitis [Unknown]
  - Bronchitis [Unknown]
